FAERS Safety Report 22916686 (Version 3)
Quarter: 2024Q2

REPORT INFORMATION
  Report Type: Report from Study
  Country: FR (occurrence: FR)
  Receive Date: 20230907
  Receipt Date: 20240617
  Transmission Date: 20240716
  Serious: Yes (Death, Other)
  Sender: FDA-Public Use
  Company Number: FR-ASTELLAS-2023US026856

PATIENT
  Age: 79 Year
  Sex: Female

DRUGS (4)
  1. ENFORTUMAB VEDOTIN-EJFV [Suspect]
     Active Substance: ENFORTUMAB VEDOTIN-EJFV
     Indication: Bladder transitional cell carcinoma
     Dosage: 1 MG/KG, CYCLIC (CYCLE 1, DAY 1)
     Route: 042
     Dates: start: 20230725
  2. ENFORTUMAB VEDOTIN-EJFV [Suspect]
     Active Substance: ENFORTUMAB VEDOTIN-EJFV
     Indication: Metastases to liver
     Dosage: 1 MG/KG, CYCLIC (CYCLE 1 DAY 8)
     Route: 042
     Dates: start: 20230801
  3. ENFORTUMAB VEDOTIN-EJFV [Suspect]
     Active Substance: ENFORTUMAB VEDOTIN-EJFV
     Dosage: 1 MG/KG, CYCLIC (CYCLE 1, DAY 15)
     Route: 042
     Dates: start: 20230808
  4. DAPAGLIFLOZIN [Suspect]
     Active Substance: DAPAGLIFLOZIN
     Indication: Type 2 diabetes mellitus
     Dosage: UNK UNK, ONCE DAILY
     Route: 048
     Dates: end: 20230812

REACTIONS (4)
  - Multiple organ dysfunction syndrome [Fatal]
  - Diabetic ketoacidosis [Fatal]
  - Underdose [Unknown]
  - Off label use [Unknown]

NARRATIVE: CASE EVENT DATE: 20230725
